FAERS Safety Report 6553034-5 (Version None)
Quarter: 2010Q1

REPORT INFORMATION
  Report Type: 
  Country: None (occurrence: None)
  Receive Date: 20100122
  Receipt Date: 20100106
  Transmission Date: 20100710
  Serious: Yes (Hospitalization)
  Sender: FDA-Public Use
  Company Number: 2010AC000023

PATIENT
  Age: 77 Year
  Sex: Female

DRUGS (22)
  1. DIGOXIN [Suspect]
     Dosage: .125 MG; PO
     Route: 048
  2. TOPROL-XL [Concomitant]
  3. NORVASC [Concomitant]
  4. AVAPRO [Concomitant]
  5. PREVACID [Concomitant]
  6. COUMADIN [Concomitant]
  7. LASIX [Concomitant]
  8. LISINOPRIL [Concomitant]
  9. GLUCOVANCE [Concomitant]
  10. NADOLOL [Concomitant]
  11. NIFEDIPINE [Concomitant]
  12. COUMADIN [Concomitant]
  13. AVAPRO [Concomitant]
  14. TOPROL-XL [Concomitant]
  15. NORVASC [Concomitant]
  16. HEPARIN [Concomitant]
  17. PREVACID [Concomitant]
  18. PRILOSEC [Concomitant]
  19. VIOXX [Concomitant]
  20. AEROCHAMBER PLUS [Concomitant]
  21. NITROGLYCERIN [Concomitant]
  22. COMBIVENT [Concomitant]

REACTIONS (13)
  - APHASIA [None]
  - ATRIAL FIBRILLATION [None]
  - CACHEXIA [None]
  - CARDIOMYOPATHY [None]
  - CEREBRAL INFARCTION [None]
  - DISORIENTATION [None]
  - ECONOMIC PROBLEM [None]
  - EMOTIONAL DISORDER [None]
  - HYPERTENSION [None]
  - LEFT VENTRICULAR HYPERTROPHY [None]
  - LOSS OF EMPLOYMENT [None]
  - MITRAL VALVE INCOMPETENCE [None]
  - PAIN [None]
